FAERS Safety Report 6828584-4 (Version None)
Quarter: 2010Q3

REPORT INFORMATION
  Report Type: 
  Country: None (occurrence: None)
  Receive Date: 20100709
  Receipt Date: 20070213
  Transmission Date: 20110219
  Serious: No
  Sender: FDA-Public Use
  Company Number: US-PFIZER INC-2007013197

PATIENT
  Sex: Female
  Weight: 90.72 kg

DRUGS (3)
  1. CHANTIX [Suspect]
     Indication: SMOKING CESSATION THERAPY
     Dates: start: 20070119
  2. LORTAB [Concomitant]
  3. VERELAN [Concomitant]
     Indication: CLUSTER HEADACHE

REACTIONS (1)
  - CLUSTER HEADACHE [None]
